FAERS Safety Report 4761742-1 (Version None)
Quarter: 2005Q3

REPORT INFORMATION
  Report Type: 
  Country: None (occurrence: None)
  Receive Date: 20050906
  Receipt Date: 20050825
  Transmission Date: 20060218
  Serious: Yes (Life-Threatening, Hospitalization)
  Sender: FDA-Public Use
  Company Number: FR-JNJFOC-20050803562

PATIENT
  Age: 60 Year
  Sex: Female

DRUGS (11)
  1. ZALDIAR [Suspect]
     Indication: PAIN
     Route: 048
  2. TOPALGIC [Suspect]
     Indication: DRUG USE FOR UNKNOWN INDICATION
     Route: 065
  3. LEVOTHYROXINE SODIUM [Concomitant]
     Route: 065
  4. LERCAN [Concomitant]
     Route: 065
  5. SECTRAL [Concomitant]
     Route: 065
  6. ALLOPURINOL [Concomitant]
     Route: 065
  7. UN-ALFA [Concomitant]
     Route: 065
  8. LYSANXIA [Concomitant]
     Route: 065
  9. TARDYFERON [Concomitant]
     Route: 065
  10. ROCEPHIN [Concomitant]
     Indication: MEASLES
     Route: 065
  11. IBUPROFEN [Concomitant]
     Route: 065

REACTIONS (5)
  - AGRANULOCYTOSIS [None]
  - ARTHRALGIA [None]
  - DRUG ERUPTION [None]
  - FACE OEDEMA [None]
  - ORAL FUNGAL INFECTION [None]
